FAERS Safety Report 7804021-8 (Version None)
Quarter: 2011Q4

REPORT INFORMATION
  Report Type: 
  Country: None (occurrence: None)
  Receive Date: 20111010
  Receipt Date: 20110928
  Transmission Date: 20120403
  Serious: No
  Sender: FDA-Public Use
  Company Number: US-JNJFOC-20110911880

PATIENT
  Sex: Male
  Weight: 116.12 kg

DRUGS (2)
  1. INVEGA SUSTENNA [Suspect]
     Indication: PRODUCT USED FOR UNKNOWN INDICATION
     Dosage: MAINTENANCE DOSE
     Route: 030
  2. INVEGA SUSTENNA [Suspect]
     Dosage: INITIAL DOSE
     Route: 030

REACTIONS (2)
  - INFLUENZA LIKE ILLNESS [None]
  - INJECTION SITE PAIN [None]
